FAERS Safety Report 23707825 (Version 2)
Quarter: 2024Q2

REPORT INFORMATION
  Report Type: Spontaneous
  Country: US (occurrence: US)
  Receive Date: 20240404
  Receipt Date: 20240524
  Transmission Date: 20240715
  Serious: No
  Sender: FDA-Public Use
  Company Number: US-BRISTOL-MYERS SQUIBB COMPANY-2024-053517

PATIENT
  Age: 71 Year
  Sex: Female
  Weight: 78.47 kg

DRUGS (2)
  1. POMALYST [Suspect]
     Active Substance: POMALIDOMIDE
     Indication: Plasma cell myeloma
     Dosage: DAILY FOR 21DAYS
     Route: 048
  2. POMALYST [Suspect]
     Active Substance: POMALIDOMIDE
     Route: 048

REACTIONS (2)
  - White blood cell count decreased [Unknown]
  - Full blood count decreased [Unknown]
